FAERS Safety Report 6124144-1 (Version None)
Quarter: 2009Q1

REPORT INFORMATION
  Report Type: 
  Country: None (occurrence: None)
  Receive Date: 20090316
  Receipt Date: 20090129
  Transmission Date: 20090719
  Serious: No
  Sender: FDA-Public Use
  Company Number: DSA_33134_2009

PATIENT
  Sex: Male
  Weight: 63.5036 kg

DRUGS (5)
  1. XENAZINE [Suspect]
     Indication: TARDIVE DYSKINESIA
     Dosage: (12.5 MG QD ORAL), (25 MG QD, IN EVENING ORAL)
     Route: 048
     Dates: start: 20090108, end: 20090115
  2. XENAZINE [Suspect]
     Indication: TARDIVE DYSKINESIA
     Dosage: (12.5 MG QD ORAL), (25 MG QD, IN EVENING ORAL)
     Route: 048
     Dates: start: 20090115, end: 20090123
  3. CLOZARIL [Concomitant]
  4. DIAZEPAM [Concomitant]
  5. GABAPENTIN [Concomitant]

REACTIONS (5)
  - CHEST PAIN [None]
  - CONDITION AGGRAVATED [None]
  - DEPRESSION [None]
  - DRUG INEFFECTIVE FOR UNAPPROVED INDICATION [None]
  - MOOD SWINGS [None]
